FAERS Safety Report 8094002-4 (Version None)
Quarter: 2012Q1

REPORT INFORMATION
  Report Type: 
  Country: None (occurrence: None)
  Receive Date: 20120131
  Receipt Date: 20120125
  Transmission Date: 20120608
  Serious: Yes (Hospitalization)
  Sender: FDA-Public Use
  Company Number: PHEH2011US03026

PATIENT
  Sex: Female
  Weight: 90.703 kg

DRUGS (1)
  1. EXJADE [Suspect]
     Indication: BLOOD IRON INCREASED
     Dosage: 1500 MG, DAILY
     Route: 048
     Dates: start: 20110830

REACTIONS (2)
  - DEHYDRATION [None]
  - NAUSEA [None]
